FAERS Safety Report 15493660 (Version 1)
Quarter: 2018Q4

REPORT INFORMATION
  Report Type: Report from Study
  Country: US (occurrence: US)
  Receive Date: 20181012
  Receipt Date: 20181012
  Transmission Date: 20190205
  Serious: No
  Sender: FDA-Public Use
  Company Number: US-INCYTE CORPORATION-2018IN008908

PATIENT

DRUGS (2)
  1. JAKAFI [Suspect]
     Active Substance: RUXOLITINIB
     Dosage: 10 MG, BID
     Route: 065
  2. JAKAFI [Suspect]
     Active Substance: RUXOLITINIB
     Dosage: 10 MG, UNK
     Route: 065

REACTIONS (6)
  - Pruritus [Unknown]
  - Haemoglobin increased [Unknown]
  - Platelet count increased [Unknown]
  - Splenomegaly [Unknown]
  - Haematocrit increased [Unknown]
  - White blood cell count increased [Unknown]
